FAERS Safety Report 5213371-3 (Version None)
Quarter: 2007Q1

REPORT INFORMATION
  Report Type: 
  Country: None (occurrence: None)
  Receive Date: 20070119
  Receipt Date: 20061228
  Transmission Date: 20070707
  Serious: No
  Sender: FDA-Public Use
  Company Number: 8499

PATIENT
  Age: 54 Year
  Sex: Male
  Weight: 127.3 kg

DRUGS (1)
  1. ARIXTRA [Suspect]
     Route: 058
     Dates: start: 20060901, end: 20060901

REACTIONS (2)
  - RASH GENERALISED [None]
  - URTICARIA [None]
